FAERS Safety Report 7831828-3 (Version None)
Quarter: 2011Q4

REPORT INFORMATION
  Report Type: 
  Country: None (occurrence: None)
  Receive Date: 20111021
  Receipt Date: 20111012
  Transmission Date: 20120403
  Serious: Yes (Other)
  Sender: FDA-Public Use
  Company Number: US-US-EMD SERONO, INC.-7089442

PATIENT
  Sex: Female

DRUGS (2)
  1. REBIF [Suspect]
     Indication: MULTIPLE SCLEROSIS
     Dates: start: 20031101, end: 20050801
  2. REBIF [Suspect]
     Route: 058
     Dates: start: 20110922

REACTIONS (3)
  - NAUSEA [None]
  - MATERNAL EXPOSURE DURING PREGNANCY [None]
  - WEIGHT DECREASED [None]
